FAERS Safety Report 21005159 (Version 2)
Quarter: 2022Q3

REPORT INFORMATION
  Report Type: Spontaneous
  Country: US (occurrence: US)
  Receive Date: 20220624
  Receipt Date: 20220628
  Transmission Date: 20221026
  Serious: No
  Sender: FDA-Public Use
  Company Number: US-NOVARTISTESTPH-NVSC2022US144530

PATIENT
  Age: 43 Year
  Sex: Female
  Weight: 136.08 kg

DRUGS (1)
  1. CEFTRIAXONE [Suspect]
     Active Substance: CEFTRIAXONE
     Indication: Gonorrhoea
     Dosage: 500 MG,  (VIAL DOSAGE SIZE AMOUNT OF DILUENT TO BE ADDED 250 MG/ML 350, 500MG DILUTED WITH 1ML LIDOC
     Route: 030
     Dates: start: 20220617

REACTIONS (1)
  - Product preparation issue [Unknown]

NARRATIVE: CASE EVENT DATE: 20220617
